FAERS Safety Report 6579314-5 (Version None)
Quarter: 2010Q1

REPORT INFORMATION
  Report Type: 
  Country: None (occurrence: None)
  Receive Date: 20100203
  Receipt Date: 20100127
  Transmission Date: 20100710
  Serious: Yes (Hospitalization)
  Sender: FDA-Public Use
  Company Number: 20097452

PATIENT
  Sex: Male

DRUGS (1)
  1. LIORESAL [Suspect]
     Indication: MUSCLE SPASTICITY
     Dosage: UNK MCG, DAILY, INTRATHECAL
     Route: 037

REACTIONS (8)
  - DEVICE MALFUNCTION [None]
  - DRUG WITHDRAWAL SYNDROME [None]
  - HYPERHIDROSIS [None]
  - HYPERTONIA [None]
  - IRRITABILITY [None]
  - MEDICAL DEVICE COMPLICATION [None]
  - MUSCLE SPASTICITY [None]
  - PAIN [None]
